FAERS Safety Report 8502475-5 (Version None)
Quarter: 2012Q3

REPORT INFORMATION
  Report Type: 
  Country: None (occurrence: None)
  Receive Date: 20120711
  Receipt Date: 20120709
  Transmission Date: 20120928
  Serious: Yes (Life-Threatening, Other)
  Sender: FDA-Public Use
  Company Number: DE-JNJFOC-20120601858

PATIENT
  Age: 47 Year
  Sex: Female

DRUGS (8)
  1. MIRTAZAPINE [Concomitant]
     Indication: PRODUCT USED FOR UNKNOWN INDICATION
     Route: 048
  2. PIRIBEDIL [Concomitant]
     Indication: PRODUCT USED FOR UNKNOWN INDICATION
     Route: 048
  3. LEVODOPA [Concomitant]
     Indication: PRODUCT USED FOR UNKNOWN INDICATION
     Route: 048
  4. BISOPROLOL FUMARATE [Concomitant]
     Indication: PRODUCT USED FOR UNKNOWN INDICATION
     Route: 048
  5. AZILECT [Concomitant]
     Route: 048
  6. DOMPERIDON [Concomitant]
     Indication: PRODUCT USED FOR UNKNOWN INDICATION
     Route: 048
  7. PANTOPRAZOLE [Concomitant]
     Indication: PRODUCT USED FOR UNKNOWN INDICATION
     Route: 048
  8. IMODIUM AD [Suspect]
     Indication: DIARRHOEA
     Dosage: MAXIMUM OF 6 CAPSULES PER DAY
     Route: 048

REACTIONS (5)
  - DEPRESSED LEVEL OF CONSCIOUSNESS [None]
  - PALPITATIONS [None]
  - RESPIRATORY DEPRESSION [None]
  - SPEECH DISORDER [None]
  - DIPLOPIA [None]
